FAERS Safety Report 22823589 (Version 2)
Quarter: 2024Q1

REPORT INFORMATION
  Report Type: Spontaneous
  Country: FR (occurrence: FR)
  Receive Date: 20230815
  Receipt Date: 20240104
  Transmission Date: 20240410
  Serious: Yes (Other)
  Sender: FDA-Public Use
  Company Number: None

PATIENT
  Age: 56 Year
  Sex: Male
  Weight: 109 kg

DRUGS (2)
  1. BRAFTOVI [Suspect]
     Active Substance: ENCORAFENIB
     Indication: Metastatic malignant melanoma
     Dosage: 300 MG, DAILY
     Route: 048
     Dates: start: 20210602
  2. MEKTOVI [Suspect]
     Active Substance: BINIMETINIB
     Indication: Metastatic malignant melanoma
     Dosage: 60 MG, DAILY
     Route: 048
     Dates: start: 20210602

REACTIONS (3)
  - Tympanic membrane perforation [Recovering/Resolving]
  - Deafness [Recovering/Resolving]
  - Otitis externa [Recovered/Resolved]

NARRATIVE: CASE EVENT DATE: 20230601
